FAERS Safety Report 20342226 (Version 1)
Quarter: 2022Q1

REPORT INFORMATION
  Report Type: Spontaneous
  Country: FR (occurrence: FR)
  Receive Date: 20220117
  Receipt Date: 20220117
  Transmission Date: 20220423
  Serious: Yes (Other)
  Sender: FDA-Public Use
  Company Number: None

PATIENT
  Age: 58 Year
  Sex: Male
  Weight: 60 kg

DRUGS (8)
  1. CARBOPLATIN [Suspect]
     Active Substance: CARBOPLATIN
     Indication: Lung neoplasm malignant
     Dosage: CARBOPLATINE TEVA,UNIT DOSE:920MG
     Route: 042
     Dates: start: 20211215
  2. APREPITANT [Suspect]
     Active Substance: APREPITANT
     Indication: Prophylaxis of nausea and vomiting
     Dosage: 1DF
     Route: 048
     Dates: start: 20211215, end: 20211216
  3. ZOPICLONE [Suspect]
     Active Substance: ZOPICLONE
     Indication: Insomnia
     Dosage: ZOPICLONE BIOGARAN 3.75 MG FILM-COATED TABLETS,UNIT DOSE:1DF
     Route: 048
     Dates: start: 20211211, end: 20211216
  4. ONDANSETRON [Suspect]
     Active Substance: ONDANSETRON
     Indication: Prophylaxis of nausea and vomiting
     Dosage: 1 FILM 2/D,,SETOFILM 8 MG, FILM ORODISPERSIBLE,UNIT DOSE:2DF
     Route: 048
     Dates: start: 20211215, end: 20211217
  5. PACLITAXEL [Suspect]
     Active Substance: PACLITAXEL
     Indication: Lung neoplasm malignant
     Dosage: PACLITAXEL HOSPIRA,UNIT DOSE:200MG/M2
     Route: 042
     Dates: start: 20211215
  6. CHOLECALCIFEROL [Suspect]
     Active Substance: CHOLECALCIFEROL
     Indication: Hypovitaminosis
     Dosage: ZYMAD 50,000 IU, ORAL SOLUTION IN AMPOULE,UNIT DOSE:1DF
     Route: 048
     Dates: start: 20211103
  7. TAMSULOSIN HYDROCHLORIDE [Suspect]
     Active Substance: TAMSULOSIN HYDROCHLORIDE
     Indication: Product used for unknown indication
     Dosage: TAMSULOSIN MYLAN L.P. 0.4 MG, PROLONGED-RELEASE CAPSULE,UNIT DOSE:1DF
     Route: 048
     Dates: start: 20211208, end: 20211216
  8. CIPROFLOXACIN [Suspect]
     Active Substance: CIPROFLOXACIN
     Indication: Infection
     Dosage: 1CP 2/D,CIPROFLOXACIN BIOGARAN GENERIC 500 MG FILM-COATED TABLETS,UNIT DOSE:2DF
     Route: 048
     Dates: start: 20211210, end: 20211217

REACTIONS (1)
  - Rash morbilliform [Recovering/Resolving]

NARRATIVE: CASE EVENT DATE: 20211217
